FAERS Safety Report 7991546-8 (Version None)
Quarter: 2011Q4

REPORT INFORMATION
  Report Type: 
  Country: None (occurrence: None)
  Receive Date: 20111219
  Receipt Date: 20111215
  Transmission Date: 20120403
  Serious: Yes (Other)
  Sender: FDA-Public Use
  Company Number: AU-PFIZER INC-2011174937

PATIENT
  Sex: Female
  Weight: 75 kg

DRUGS (5)
  1. NILSTAT [Concomitant]
     Indication: ORAL CANDIDIASIS
     Dosage: 2 DOSE FOUR TIMES DAILY
     Route: 048
  2. LERCANIDIPINE [Concomitant]
     Indication: HYPERTENSION
     Dosage: 20 MG, 1X/DAY
     Route: 048
  3. PANTOPRAZOLE [Concomitant]
     Indication: GASTROOESOPHAGEAL REFLUX DISEASE
     Dosage: ONE DOSE FORM DAILY
     Route: 048
  4. PRISTIQ [Suspect]
     Indication: DEPRESSION
     Dosage: 50 MG, 1X/DAY
     Route: 048
  5. SPAN-K [Concomitant]
     Indication: HYPOKALAEMIA
     Dosage: ONE DOSE FORM DAILY
     Route: 048

REACTIONS (18)
  - ASTHENIA [None]
  - AGGRESSION [None]
  - IRRITABILITY [None]
  - MALAISE [None]
  - DEPRESSED MOOD [None]
  - INSOMNIA [None]
  - ABNORMAL DREAMS [None]
  - VISUAL IMPAIRMENT [None]
  - PRURITUS [None]
  - RESTLESSNESS [None]
  - BLOOD PRESSURE INCREASED [None]
  - HEADACHE [None]
  - GASTROINTESTINAL DISORDER [None]
  - MOOD SWINGS [None]
  - NAUSEA [None]
  - ANXIETY [None]
  - URINARY RETENTION [None]
  - BRADYPHRENIA [None]
